FAERS Safety Report 20645447 (Version 1)
Quarter: 2022Q1

REPORT INFORMATION
  Report Type: Spontaneous
  Country: KR (occurrence: KR)
  Receive Date: 20220328
  Receipt Date: 20220328
  Transmission Date: 20220424
  Serious: Yes (Death, Hospitalization)
  Sender: FDA-Public Use
  Company Number: KR-ELI_LILLY_AND_COMPANY-KR202203011439

PATIENT
  Age: 32 Year
  Sex: Male

DRUGS (5)
  1. ZYPREXA [Suspect]
     Active Substance: OLANZAPINE
     Indication: Schizophrenia
     Dosage: UNK, UNKNOWN
     Route: 048
  2. ZYPREXA [Suspect]
     Active Substance: OLANZAPINE
     Dosage: 20 MG, UNKNOWN
     Route: 048
  3. ZYPREXA [Suspect]
     Active Substance: OLANZAPINE
     Dosage: 20 MG, UNKNOWN
     Route: 048
     Dates: start: 20160510
  4. PROPRANOLOL HYDROCHLORIDE [Suspect]
     Active Substance: PROPRANOLOL HYDROCHLORIDE
     Indication: Product used for unknown indication
     Dosage: 40 MG, UNKNOWN
     Route: 065
  5. RISPERIDONE [Concomitant]
     Active Substance: RISPERIDONE
     Indication: Schizophrenia
     Dosage: 4 MG, UNKNOWN
     Route: 065

REACTIONS (2)
  - Completed suicide [Fatal]
  - Drug ineffective [Fatal]
